FAERS Safety Report 19640700 (Version 1)
Quarter: 2021Q3

REPORT INFORMATION
  Report Type: Spontaneous
  Country: CA (occurrence: CA)
  Receive Date: 20210729
  Receipt Date: 20210729
  Transmission Date: 20211014
  Serious: Yes (Hospitalization)
  Sender: FDA-Public Use
  Company Number: CA-ROCHE-2878180

PATIENT
  Age: 58 Year
  Sex: Male

DRUGS (2)
  1. RITUXIMAB. [Suspect]
     Active Substance: RITUXIMAB
     Indication: NON-HODGKIN^S LYMPHOMA
     Route: 065
  2. RITUXIMAB. [Suspect]
     Active Substance: RITUXIMAB
     Indication: B-CELL LYMPHOMA
     Route: 065

REACTIONS (22)
  - Eosinophil count increased [Unknown]
  - Platelet count decreased [Unknown]
  - Staphylococcus test positive [Unknown]
  - White blood cell count decreased [Unknown]
  - Dysuria [Unknown]
  - Lymphocyte count decreased [Unknown]
  - Blood alkaline phosphatase increased [Unknown]
  - Blood chloride increased [Unknown]
  - Febrile neutropenia [Unknown]
  - Haemoglobin decreased [Unknown]
  - Nausea [Unknown]
  - Pancytopenia [Unknown]
  - Blood magnesium decreased [Unknown]
  - Chills [Unknown]
  - Vomiting [Unknown]
  - Red cell distribution width increased [Unknown]
  - Chronic kidney disease [Unknown]
  - Glomerular filtration rate decreased [Unknown]
  - Haematocrit decreased [Unknown]
  - Blood creatinine increased [Unknown]
  - Body temperature increased [Unknown]
  - Fatigue [Unknown]
